FAERS Safety Report 13489180 (Version 1)
Quarter: 2017Q2

REPORT INFORMATION
  Report Type: Spontaneous
  Country: US (occurrence: US)
  Receive Date: 20170426
  Receipt Date: 20170426
  Transmission Date: 20170830
  Serious: No
  Sender: FDA-Public Use
  Company Number: US-ALKERMES INC.-ALK-2017-000791

PATIENT
  Age: 53 Year
  Sex: Female

DRUGS (1)
  1. VIVITROL [Suspect]
     Active Substance: NALTREXONE
     Indication: ALCOHOLISM
     Dosage: 380 MG, QMO
     Route: 030
     Dates: start: 20170119

REACTIONS (5)
  - Tooth disorder [Unknown]
  - Injection site reaction [Recovering/Resolving]
  - Injection site mass [Recovering/Resolving]
  - Fatigue [Unknown]
  - Alcoholism [Unknown]

NARRATIVE: CASE EVENT DATE: 2017
